FAERS Safety Report 12822381 (Version 1)
Quarter: 2016Q4

REPORT INFORMATION
  Report Type: Report from Study
  Country: US (occurrence: US)
  Receive Date: 20161006
  Receipt Date: 20161006
  Transmission Date: 20170207
  Serious: No
  Sender: FDA-Public Use
  Company Number: US-THERATECHNOLOGIES, INC.-TH-2016-00126

PATIENT
  Sex: Male
  Weight: 81.72 kg

DRUGS (1)
  1. EGRIFTA [Suspect]
     Active Substance: TESAMORELIN
     Dosage: UNKNOWN
     Dates: start: 20160909

REACTIONS (1)
  - Pain [Not Recovered/Not Resolved]
